FAERS Safety Report 18286033 (Version 2)
Quarter: 2020Q4

REPORT INFORMATION
  Report Type: Report from Study
  Country: CO (occurrence: CO)
  Receive Date: 20200919
  Receipt Date: 20201012
  Transmission Date: 20210113
  Serious: Yes (Other)
  Sender: FDA-Public Use
  Company Number: CO-INCYTE CORPORATION-2020IN008863

PATIENT

DRUGS (4)
  1. JAKAVI [Suspect]
     Active Substance: RUXOLITINIB
     Indication: POLYCYTHAEMIA VERA
     Dosage: 10 MG, Q12H (STARTED 2 YEARS AGO)
     Route: 048
  2. ACETYLSALICYLIC ACID [Concomitant]
     Active Substance: ASPIRIN
     Indication: ANTICOAGULANT THERAPY
     Dosage: 100 MG, QD
     Route: 048
  3. DIOSMIN [Concomitant]
     Active Substance: DIOSMIN
     Indication: ANTICOAGULANT THERAPY
     Dosage: 500 MG, QD
     Route: 048
  4. THIAMINE. [Concomitant]
     Active Substance: THIAMINE
     Indication: ANTICOAGULANT THERAPY
     Dosage: 500 MG, QD
     Route: 048

REACTIONS (9)
  - Hypersensitivity [Recovered/Resolved]
  - Oral mucosal blistering [Recovered/Resolved]
  - Pyrexia [Recovered/Resolved]
  - Vein rupture [Recovered/Resolved]
  - Headache [Recovered/Resolved]
  - Product dose omission issue [Unknown]
  - SARS-CoV-2 test positive [Recovered/Resolved]
  - Chills [Recovered/Resolved]
  - Thrombophlebitis [Recovering/Resolving]

NARRATIVE: CASE EVENT DATE: 20200825
